FAERS Safety Report 19651919 (Version 1)
Quarter: 2021Q3

REPORT INFORMATION
  Report Type: Spontaneous
  Country: RU (occurrence: RU)
  Receive Date: 20210803
  Receipt Date: 20210803
  Transmission Date: 20211014
  Serious: Yes (Other)
  Sender: FDA-Public Use
  Company Number: RU-TEVA-2021-RU-1938098

PATIENT
  Age: 49 Year
  Sex: Female

DRUGS (7)
  1. FLUDARABINE [Suspect]
     Active Substance: FLUDARABINE PHOSPHATE
     Indication: BONE MARROW CONDITIONING REGIMEN
     Route: 065
  2. DAUNORUBICIN [Suspect]
     Active Substance: DAUNORUBICIN
     Indication: CHLOROMA
     Dosage: 60 MG/M2 DAILY; INDUCTION CHEMOTHERAPY
     Route: 065
  3. BUSULFAN. [Suspect]
     Active Substance: BUSULFAN
     Indication: BONE MARROW CONDITIONING REGIMEN
     Route: 065
  4. CYTOSINE ARABINOSIDE [Suspect]
     Active Substance: CYTARABINE
     Indication: CHLOROMA
     Dosage: 3 G/M2/DAY (HIGH?DOSE)
     Route: 065
  5. VENETOCLAX. [Concomitant]
     Active Substance: VENETOCLAX
     Indication: CHLOROMA
     Route: 065
  6. CYTOSINE ARABINOSIDE [Suspect]
     Active Substance: CYTARABINE
     Indication: CHLOROMA
     Dosage: 200 MG/M2 DAILY; INDUCTION CHEMOTHERAPY
     Route: 065
  7. 5?AZACITIDINE [Concomitant]
     Active Substance: AZACITIDINE
     Indication: CHLOROMA
     Route: 065

REACTIONS (4)
  - Systemic mycosis [Recovered/Resolved]
  - Klebsiella infection [Recovered/Resolved]
  - Sepsis [Recovered/Resolved]
  - Febrile neutropenia [Recovered/Resolved]
